FAERS Safety Report 21773362 (Version 2)
Quarter: 2022Q4

REPORT INFORMATION
  Report Type: Spontaneous
  Country: TN (occurrence: TN)
  Receive Date: 20221223
  Receipt Date: 20221226
  Transmission Date: 20230113
  Serious: Yes (Hospitalization)
  Sender: FDA-Public Use
  Company Number: TN-JNJFOC-20221239548

PATIENT
  Age: 57 Year
  Sex: Female

DRUGS (2)
  1. HALDOL [Interacting]
     Active Substance: HALOPERIDOL
     Indication: Bipolar I disorder
     Route: 065
  2. LITHIUM [Interacting]
     Active Substance: LITHIUM
     Indication: Bipolar I disorder
     Route: 065

REACTIONS (5)
  - Renal failure [Recovered/Resolved]
  - Leukoencephalopathy [Recovered/Resolved]
  - Neuroleptic malignant syndrome [Recovered/Resolved]
  - Parkinsonism [Recovered/Resolved]
  - Drug interaction [Unknown]
